FAERS Safety Report 10066077 (Version 1)
Quarter: 2014Q2

REPORT INFORMATION
  Report Type: Report from Study
  Country: US (occurrence: US)
  Receive Date: 20140408
  Receipt Date: 20140408
  Transmission Date: 20141212
  Serious: Yes (Hospitalization)
  Sender: FDA-Public Use
  Company Number: US-MERCK-1404USA004526

PATIENT
  Age: 35 Year
  Sex: Female
  Weight: 69.2 kg

DRUGS (3)
  1. VORINOSTAT [Suspect]
     Indication: ACUTE MYELOID LEUKAEMIA
     Dosage: 100 MG, BID, ON DAYS -10 THROUGH 100, CYCLE: 1, CYCLE: 180 DAYS
     Route: 048
     Dates: start: 20131124, end: 20131226
  2. TACROLIMUS [Suspect]
     Indication: ACUTE MYELOID LEUKAEMIA
     Dosage: 0.03 MG/KG IV BEGNINING ON DAY -3 OR 0.045 MG/KG/PO BID BEGNING ON DAY -3, CYCLE: 1, CYCLE: 180DAYS
     Dates: start: 20131201, end: 20131226
  3. METHOTREXATE [Suspect]
     Indication: ACUTE MYELOID LEUKAEMIA
     Dosage: 5 MG/M2, ON DAYS 1, 3, 6 AND 11, CYCLE: 1, CYCLE: 180 DAYS
     Route: 042
     Dates: start: 20131204, end: 20131216

REACTIONS (2)
  - Dysphagia [Recovered/Resolved]
  - Dehydration [Unknown]
